FAERS Safety Report 5642797-9 (Version None)
Quarter: 2008Q1

REPORT INFORMATION
  Report Type: 
  Country: None (occurrence: None)
  Receive Date: 20080227
  Receipt Date: 20080227
  Transmission Date: 20080703
  Serious: No
  Sender: FDA-Public Use
  Company Number: None

PATIENT
  Sex: Female

DRUGS (1)
  1. OBAGI/NU-DERM SYSTEM (OBAGI MEDICAL PRODUCTS, INC.) [Suspect]

REACTIONS (4)
  - ANAPHYLACTIC SHOCK [None]
  - LOCAL SWELLING [None]
  - REACTION TO PRESERVATIVES [None]
  - SWELLING FACE [None]
